FAERS Safety Report 11170703 (Version 2)
Quarter: 2018Q1

REPORT INFORMATION
  Report Type: Spontaneous
  Country: US (occurrence: US)
  Receive Date: 20150608
  Receipt Date: 20180125
  Transmission Date: 20180508
  Serious: No
  Sender: FDA-Public Use
  Company Number: US-SHIRE-US201505010

PATIENT
  Age: 6 Year
  Sex: Male
  Weight: 29.48 kg

DRUGS (1)
  1. ELAPRASE [Suspect]
     Active Substance: IDURSULFASE
     Indication: MUCOPOLYSACCHARIDOSIS II
     Dosage: 24 MG, UNKNOWN
     Route: 041
     Dates: start: 20150525

REACTIONS (2)
  - Rash [Unknown]
  - Urticaria [Unknown]

NARRATIVE: CASE EVENT DATE: 20150602
